FAERS Safety Report 14376296 (Version 2)
Quarter: 2018Q1

REPORT INFORMATION
  Report Type: Report from Study
  Country: TW (occurrence: TW)
  Receive Date: 20180111
  Receipt Date: 20180122
  Transmission Date: 20180509
  Serious: Yes (Hospitalization)
  Sender: FDA-Public Use
  Company Number: TW-JNJFOC-20180110561

PATIENT
  Age: 50 Year
  Sex: Male
  Weight: 70 kg

DRUGS (13)
  1. STELARA [Suspect]
     Active Substance: USTEKINUMAB
     Indication: PSORIASIS
     Route: 058
     Dates: start: 20100223, end: 20170627
  2. CEFALEXIN [Concomitant]
     Active Substance: CEPHALEXIN
     Dosage: 12 DOSES FOR 3 DAYS ORALLY AFTER MEALS(POPC)
     Route: 065
     Dates: start: 20171228
  3. HUMIRA [Concomitant]
     Active Substance: ADALIMUMAB
     Indication: PSORIASIS
     Route: 058
     Dates: start: 20070710, end: 20170915
  4. DIAMICRON [Concomitant]
     Active Substance: GLICLAZIDE
     Indication: HYPERTENSION
     Dosage: 60 DOSES FOR 30 DAYS
     Route: 048
     Dates: start: 20171013
  5. AMLODIPINE [Concomitant]
     Active Substance: AMLODIPINE BESYLATE
     Indication: HYPERTENSION
     Dosage: 30 DOSES FOR 30 DAYS
     Route: 048
     Dates: start: 20171111
  6. AMLODIPINE [Concomitant]
     Active Substance: AMLODIPINE BESYLATE
     Indication: HYPERTENSION
     Dosage: 30 DOSES FOR 30 DAYS ORALLY AFTER FOOD (POPC)
     Route: 048
     Dates: start: 20171216
  7. GENTAMICIN SULFATE. [Concomitant]
     Active Substance: GENTAMICIN SULFATE
     Dosage: 1 DOSE FOR ONCE IMMEDIATELY (STAT)
     Route: 065
     Dates: start: 20171228
  8. ACETAMINOPHEN. [Concomitant]
     Active Substance: ACETAMINOPHEN
     Dosage: 12 DOSE FOR 3 DAYS ORALLY AFTER MEALS(POPC)
     Route: 048
     Dates: start: 20171228
  9. DIAMICRON [Concomitant]
     Active Substance: GLICLAZIDE
     Indication: HYPERTENSION
     Dosage: 60 DOSES FOR 30 DAYS ORALLY AFTER FOOD (POPC)
     Route: 048
     Dates: start: 20171216
  10. AMLODIPINE [Concomitant]
     Active Substance: AMLODIPINE BESYLATE
     Indication: HYPERTENSION
     Dosage: 30 DOSES FOR 30 DAYS
     Route: 048
     Dates: start: 20171013
  11. LYSOZYME [Concomitant]
     Active Substance: LYSOZYME
     Dosage: 12 DOSES FOR 3 DAYS ORALLY AFTER MEALS(POPC)
     Route: 048
     Dates: start: 20171228
  12. DIAMICRON [Concomitant]
     Active Substance: GLICLAZIDE
     Indication: HYPERTENSION
     Dosage: 60 DOSES FOR 30 DAYS
     Route: 048
     Dates: start: 20171111
  13. OXETACAINE [Concomitant]
     Active Substance: OXETHAZAINE
     Dosage: 12 DOSE FOR 3 DAYS ORALLY FOR 3 DAYS (POPC)
     Route: 048
     Dates: start: 20171228

REACTIONS (1)
  - Cellulitis [Recovered/Resolved]

NARRATIVE: CASE EVENT DATE: 20171229
